FAERS Safety Report 11967407 (Version 1)
Quarter: 2016Q1

REPORT INFORMATION
  Report Type: Spontaneous
  Country: FR (occurrence: FR)
  Receive Date: 20160127
  Receipt Date: 20160127
  Transmission Date: 20160526
  Serious: Yes (Disabling)
  Sender: FDA-Public Use
  Company Number: FR-PFIZER INC-2015395421

PATIENT
  Age: 31 Year
  Sex: Female
  Weight: 55 kg

DRUGS (7)
  1. SYNAREL [Suspect]
     Active Substance: NAFARELIN ACETATE
     Indication: OVULATION INDUCTION
     Dosage: 1 DF, 2X/DAY
     Route: 045
     Dates: start: 20150513, end: 20150608
  2. DESFLURANE. [Suspect]
     Active Substance: DESFLURANE
     Indication: ANAESTHESIA
     Dosage: UNK
     Route: 045
     Dates: start: 20150611, end: 20150611
  3. SUFENTA [Concomitant]
     Active Substance: SUFENTANIL CITRATE
     Indication: ANAESTHESIA
     Dosage: 15 GAMMA, SINGLE
     Route: 042
     Dates: start: 20150611, end: 20150611
  4. FENTANYL. [Suspect]
     Active Substance: FENTANYL
     Indication: ANAESTHESIA
     Dosage: UNK UNK, SINGLE
     Route: 042
     Dates: start: 20150611, end: 20150611
  5. DIPRIVAN [Suspect]
     Active Substance: PROPOFOL
     Indication: ANAESTHESIA
     Dosage: 400 (UNIT NOT PROVIDED), SINGLE
     Route: 042
     Dates: start: 20150611, end: 20150611
  6. MENOPUR [Concomitant]
     Active Substance: FOLLICLE STIMULATING HORMONE BETA POLYPEPTIDE\LUTROPIN ALFA
     Indication: OVULATION INDUCTION
     Dosage: 112.5 IU, DAILY
     Route: 058
     Dates: start: 20150529, end: 20150608
  7. HCG [Concomitant]
     Active Substance: GONADOTROPHIN, CHORIONIC
     Indication: OVULATION INDUCTION
     Dosage: 5000 IU, SINGLE
     Route: 003
     Dates: start: 20150609, end: 20150609

REACTIONS (2)
  - Anosmia [Recovered/Resolved with Sequelae]
  - Ageusia [Recovered/Resolved with Sequelae]

NARRATIVE: CASE EVENT DATE: 20150611
